FAERS Safety Report 5916046-8 (Version None)
Quarter: 2008Q4

REPORT INFORMATION
  Report Type: 
  Country: None (occurrence: None)
  Receive Date: 20081013
  Receipt Date: 20081003
  Transmission Date: 20090506
  Serious: Yes (Life-Threatening)
  Sender: FDA-Public Use
  Company Number: JP-JNJFOC-20080905271

PATIENT
  Sex: Female
  Weight: 42 kg

DRUGS (7)
  1. REMICADE [Suspect]
     Indication: CROHN'S DISEASE
     Dosage: FIRST DOSE
     Route: 042
  2. MESALAMINE [Concomitant]
     Route: 048
  3. AZATHIOPRINE [Concomitant]
     Route: 048
  4. PREDNISOLONE [Concomitant]
     Route: 048
  5. PREDNISOLONE [Concomitant]
     Route: 048
  6. PREDNISOLONE [Concomitant]
     Route: 048
  7. ELENTAL [Concomitant]
     Route: 051

REACTIONS (3)
  - CENTRAL LINE INFECTION [None]
  - PHLEBITIS [None]
  - VENOUS THROMBOSIS [None]
